FAERS Safety Report 9938718 (Version 3)
Quarter: 2014Q1

REPORT INFORMATION
  Report Type: Spontaneous
  Country: ES (occurrence: ES)
  Receive Date: 20140303
  Receipt Date: 20140324
  Transmission Date: 20141002
  Serious: Yes (Death, Hospitalization)
  Sender: FDA-Public Use
  Company Number: ES-SA-2014SA022331

PATIENT
  Age: 80 Year
  Sex: Female
  Weight: 80 kg

DRUGS (9)
  1. MULTAQ [Suspect]
     Indication: ATRIAL FIBRILLATION
     Route: 048
     Dates: start: 20131002, end: 20140127
  2. SINTROM [Concomitant]
     Indication: THROMBOSIS PROPHYLAXIS
     Route: 065
     Dates: start: 201310, end: 201401
  3. OLMETEC [Concomitant]
     Indication: HYPERTENSION
     Route: 065
     Dates: start: 20110606, end: 201401
  4. TRANXILIUM [Concomitant]
     Route: 065
     Dates: end: 201401
  5. VALERIAN [Concomitant]
     Route: 065
     Dates: end: 201401
  6. FUROSEMIDE [Concomitant]
     Route: 065
     Dates: start: 20140123
  7. OMEPRAZOLE [Concomitant]
     Dates: start: 20120725
  8. CYANOCOBALAMIN [Concomitant]
     Dates: start: 201206
  9. INDAPAMIDE [Concomitant]
     Dates: start: 20140123, end: 20140124

REACTIONS (5)
  - Renal failure [Fatal]
  - Drug-induced liver injury [Fatal]
  - Acute hepatic failure [Fatal]
  - Jaundice [Unknown]
  - Encephalopathy [Recovered/Resolved]
